FAERS Safety Report 14683185 (Version 1)
Quarter: 2018Q1

REPORT INFORMATION
  Report Type: Spontaneous
  Country: US (occurrence: US)
  Receive Date: 20180327
  Receipt Date: 20180327
  Transmission Date: 20180509
  Serious: Yes (Other)
  Sender: FDA-Public Use
  Company Number: US-ASTRAZENECA-2018SE34711

PATIENT

DRUGS (24)
  1. DARVON [Suspect]
     Active Substance: PROPOXYPHENE HYDROCHLORIDE
     Route: 065
  2. LEVEMIR [Suspect]
     Active Substance: INSULIN DETEMIR
     Route: 065
  3. METHOCARBAMOL. [Concomitant]
     Active Substance: METHOCARBAMOL
     Route: 048
  4. PENTAZOCINE -NALOXONE [Concomitant]
     Route: 048
  5. HUMALOG [Concomitant]
     Active Substance: INSULIN LISPRO
     Dosage: 75 UNITS DAILY
  6. PRILOSEC [Suspect]
     Active Substance: OMEPRAZOLE MAGNESIUM
     Route: 048
  7. DULOXETINE. [Concomitant]
     Active Substance: DULOXETINE
     Route: 048
  8. PROAIR HFA [Concomitant]
     Active Substance: ALBUTEROL SULFATE
     Dosage: 2 PUFFS EVERY 6 HOURS AS NEEDED
  9. LANTUS [Concomitant]
     Active Substance: INSULIN GLARGINE
     Dosage: 25 UNITS AT BEDTIME
     Route: 058
  10. VALISONE [Concomitant]
     Active Substance: BETAMETHASONE VALERATE
     Route: 061
  11. IBUPROFEN. [Suspect]
     Active Substance: IBUPROFEN
     Route: 065
  12. NEURONTIN [Suspect]
     Active Substance: GABAPENTIN
     Route: 065
  13. CYCLOBENZAPRINE. [Suspect]
     Active Substance: CYCLOBENZAPRINE
     Route: 065
  14. TIZANIDINE. [Suspect]
     Active Substance: TIZANIDINE
     Route: 065
  15. LYRICA [Concomitant]
     Active Substance: PREGABALIN
     Route: 048
  16. RETIN-A [Concomitant]
     Active Substance: TRETINOIN
     Route: 061
  17. RETIN-A [Concomitant]
     Active Substance: TRETINOIN
     Route: 061
  18. DIPHENHYDRAMINE. [Concomitant]
     Active Substance: DIPHENHYDRAMINE
     Dosage: 25.0MG AS REQUIRED
     Route: 048
  19. DIPHENHYDRAMINE. [Concomitant]
     Active Substance: DIPHENHYDRAMINE
     Dosage: 25.0MG AS REQUIRED
     Route: 048
  20. LANTUS [Concomitant]
     Active Substance: INSULIN GLARGINE
     Dosage: 25 UNITS AT BEDTIME
     Route: 058
  21. GLUCAGON. [Concomitant]
     Active Substance: GLUCAGON
     Dosage: 1.0MG AS REQUIRED
  22. PROAIR HFA [Concomitant]
     Active Substance: ALBUTEROL SULFATE
     Dosage: 2 PUFFS EVERY 6 HOURS AS NEEDED
  23. CHANTIX [Concomitant]
     Active Substance: VARENICLINE TARTRATE
     Route: 048
  24. VALISONE [Concomitant]
     Active Substance: BETAMETHASONE VALERATE
     Route: 061

REACTIONS (1)
  - Anaphylactic reaction [Unknown]
